FAERS Safety Report 9131425 (Version 1)
Quarter: 2013Q1

REPORT INFORMATION
  Report Type: Report from Study
  Country: US (occurrence: US)
  Receive Date: 20130301
  Receipt Date: 20130301
  Transmission Date: 20140127
  Serious: Yes (Other)
  Sender: FDA-Public Use
  Company Number: US-MYLANLABS-2012S1004425

PATIENT
  Age: 20 Year
  Sex: Male

DRUGS (4)
  1. AMNESTEEM CAPSULES [Suspect]
     Indication: ACNE
     Route: 048
     Dates: start: 201111, end: 20120117
  2. AMNESTEEM CAPSULES [Suspect]
     Indication: ACNE
     Route: 048
     Dates: start: 20120207
  3. ACZONE [Concomitant]
     Indication: ACNE
  4. ALBUTEROL INHALER [Concomitant]
     Indication: ASTHMA

REACTIONS (1)
  - White blood cell count decreased [Recovered/Resolved]
